FAERS Safety Report 9326202 (Version 2)
Quarter: 2013Q2

REPORT INFORMATION
  Report Type: Spontaneous
  Country: JM (occurrence: JM)
  Receive Date: 20130604
  Receipt Date: 20130605
  Transmission Date: 20140414
  Serious: Yes (Death, Other)
  Sender: FDA-Public Use
  Company Number: JM-B.I. PHARMACEUTICALS,INC./RIDGEFIELD-2013-CN-01008CN

PATIENT
  Age: 83 Year
  Sex: Female

DRUGS (5)
  1. PRADAX [Suspect]
     Dosage: 220 MG
     Dates: start: 20130510
  2. ISOSORBIDE DINITRATE [Concomitant]
  3. METFORMIN [Concomitant]
  4. DIGOXIN [Concomitant]
  5. VERAPAMIL [Concomitant]

REACTIONS (2)
  - Pneumonia [Fatal]
  - Cardiac failure congestive [Unknown]
